FAERS Safety Report 4642346-8 (Version None)
Quarter: 2005Q2

REPORT INFORMATION
  Report Type: 
  Country: None (occurrence: None)
  Receive Date: 20050421
  Receipt Date: 20050421
  Transmission Date: 20051028
  Serious: Yes (Other)
  Sender: FDA-Public Use
  Company Number: None

PATIENT
  Age: 54 Year
  Sex: Female
  Weight: 58.9676 kg

DRUGS (14)
  1. CELEBREX [Suspect]
     Indication: INFLAMMATION
     Dosage: 200MG ONCE DAILY ORALLY
     Route: 048
     Dates: start: 20000101, end: 20040101
  2. CELEBREX [Suspect]
     Indication: JUVENILE ARTHRITIS
     Dosage: 200MG ONCE DAILY ORALLY
     Route: 048
     Dates: start: 20000101, end: 20040101
  3. ALTACE [Concomitant]
  4. ATENOLOL [Concomitant]
  5. PLAVIX [Concomitant]
  6. SYNTHROID [Concomitant]
  7. ZANTAC [Concomitant]
  8. PREMPRO [Concomitant]
  9. VALTREX [Concomitant]
  10. NOVOLOG INSULIN PUMP [Concomitant]
  11. ASPIRIN [Concomitant]
  12. CALCIUM GLUCONATE [Concomitant]
  13. VITAMIN C [Concomitant]
  14. MULTI-VITAMIN [Concomitant]

REACTIONS (1)
  - LIVER FUNCTION TEST ABNORMAL [None]
